FAERS Safety Report 12462164 (Version 3)
Quarter: 2017Q1

REPORT INFORMATION
  Report Type: Report from Study
  Country: US (occurrence: US)
  Receive Date: 20160613
  Receipt Date: 20170327
  Transmission Date: 20170428
  Serious: Yes (Other)
  Sender: FDA-Public Use
  Company Number: US-BAXALTA-2016BLT003929

PATIENT
  Sex: Female

DRUGS (2)
  1. GAMMAGARD LIQUID [Suspect]
     Active Substance: HUMAN IMMUNOGLOBULIN G
     Dosage: 40 G, UNK
     Route: 042
     Dates: end: 20161220
  2. GAMMAGARD LIQUID [Suspect]
     Active Substance: HUMAN IMMUNOGLOBULIN G
     Indication: IMMUNODEFICIENCY COMMON VARIABLE
     Dosage: 45 G, EVERY 4 WK
     Route: 042
     Dates: start: 20140911

REACTIONS (12)
  - Sleep disorder [Unknown]
  - Dry throat [Unknown]
  - Throat irritation [Unknown]
  - Adverse drug reaction [Unknown]
  - Nasal congestion [Unknown]
  - Productive cough [Unknown]
  - Ear discomfort [Unknown]
  - Conjunctivitis allergic [Unknown]
  - Hypersensitivity [Not Recovered/Not Resolved]
  - Sinus disorder [Not Recovered/Not Resolved]
  - Dysphagia [Unknown]
  - Malaise [Unknown]

NARRATIVE: CASE EVENT DATE: 2016
